FAERS Safety Report 7866221-0 (Version None)
Quarter: 2011Q4

REPORT INFORMATION
  Report Type: 
  Country: None (occurrence: None)
  Receive Date: 20111028
  Receipt Date: 20110512
  Transmission Date: 20120403
  Serious: No
  Sender: FDA-Public Use
  Company Number: US-GLAXOSMITHKLINE-A0927166A

PATIENT
  Age: 54 Year
  Sex: Female

DRUGS (7)
  1. ADVAIR DISKUS 100/50 [Suspect]
     Indication: ASTHMA
     Dosage: 1PUFF TWICE PER DAY
     Route: 055
     Dates: start: 20060101, end: 20080101
  2. LISINOPRIL [Concomitant]
  3. CLARITIN [Concomitant]
  4. DICYCLOMINE [Concomitant]
  5. REGLAN [Concomitant]
  6. OXYBUTYNIN [Concomitant]
  7. OMEPRAZOLE [Concomitant]

REACTIONS (3)
  - HYPERVENTILATION [None]
  - CHEST DISCOMFORT [None]
  - UNDERDOSE [None]
